FAERS Safety Report 8474898-4 (Version None)
Quarter: 2012Q2

REPORT INFORMATION
  Report Type: 
  Country: None (occurrence: None)
  Receive Date: 20120621
  Receipt Date: 20120609
  Transmission Date: 20120825
  Serious: Yes (Life-Threatening, Hospitalization)
  Sender: FDA-Public Use
  Company Number: 2012-NL-0002

PATIENT
  Age: 56 Year
  Sex: Male

DRUGS (10)
  1. LIPITOR [Concomitant]
  2. CORTISONACETAAT PCH (CORTISONE ACETATE) [Concomitant]
  3. METOPROLOL TARTRAAT (METOPROLOL TARTRATE) [Concomitant]
  4. OXYCONTIN [Concomitant]
  5. CODIOVAN (HYDROCHLOROTHIAZIDE W/VALSARTAN) [Concomitant]
  6. FENTANYL NYCOMED (FENTANYL) [Concomitant]
  7. FLUDROCORTISON ACETAAT PCH (FLUDROCORTISONE ACETATE) [Concomitant]
  8. NEXAVAR [Concomitant]
  9. FENTANYL [Suspect]
     Indication: BACK PAIN
     Dosage: 200 MCG X 1 PER AS REQUIRED
     Dates: start: 20120507, end: 20120509
  10. ASASANTIN RETART (ACETYLSALICYLIC ACID W/DIPYRIDAMOLE) [Concomitant]

REACTIONS (4)
  - C-REACTIVE PROTEIN INCREASED [None]
  - INFECTION [None]
  - LOCAL SWELLING [None]
  - BLOOD CREATINE PHOSPHOKINASE INCREASED [None]
